FAERS Safety Report 11687687 (Version 1)
Quarter: 2015Q4

REPORT INFORMATION
  Report Type: Report from Study
  Country: TW (occurrence: TW)
  Receive Date: 20151030
  Receipt Date: 20151030
  Transmission Date: 20160304
  Serious: Yes (Other)
  Sender: FDA-Public Use
  Company Number: TW-INCYTE CORPORATION-2015IN005403

PATIENT
  Age: 72 Year
  Sex: Female

DRUGS (1)
  1. JAKAFI [Suspect]
     Active Substance: RUXOLITINIB
     Indication: MYELOFIBROSIS
     Dosage: 50 MG, UNK
     Route: 048

REACTIONS (2)
  - Pneumonia [Recovering/Resolving]
  - Genital herpes simplex [Recovering/Resolving]

NARRATIVE: CASE EVENT DATE: 20150402
